FAERS Safety Report 10912866 (Version 1)
Quarter: 2015Q1

REPORT INFORMATION
  Report Type: Spontaneous
  Country: FR (occurrence: FR)
  Receive Date: 20150313
  Receipt Date: 20150313
  Transmission Date: 20150721
  Serious: Yes (Hospitalization, Other)
  Sender: FDA-Public Use
  Company Number: FR-PFIZER INC-2015088002

PATIENT
  Age: 42 Year
  Sex: Female

DRUGS (3)
  1. ASPIRINE [Suspect]
     Active Substance: ASPIRIN
     Dosage: 9 G, SINGLE
     Route: 048
     Dates: start: 20150207, end: 20150207
  2. ESCITALOPRAM [Concomitant]
     Active Substance: ESCITALOPRAM OXALATE
     Dosage: UNK
     Dates: start: 201502
  3. XANAX [Suspect]
     Active Substance: ALPRAZOLAM
     Dosage: 15 MG, SINGLE
     Route: 048
     Dates: start: 20150207, end: 20150207

REACTIONS (4)
  - Somnolence [Recovered/Resolved]
  - Overdose [Unknown]
  - Respiratory alkalosis [Unknown]
  - Poisoning deliberate [Unknown]

NARRATIVE: CASE EVENT DATE: 20150207
